FAERS Safety Report 7335826-8 (Version None)
Quarter: 2011Q1

REPORT INFORMATION
  Report Type: 
  Country: None (occurrence: None)
  Receive Date: 20110307
  Receipt Date: 20110226
  Transmission Date: 20110831
  Serious: Yes (Hospitalization)
  Sender: FDA-Public Use
  Company Number: SG-MERCK-1102USA02564

PATIENT
  Age: 54 Year
  Sex: Female

DRUGS (4)
  1. JANUVIA [Suspect]
     Indication: DIABETES MELLITUS
     Route: 048
     Dates: start: 20101014, end: 20101031
  2. JANUVIA [Suspect]
     Route: 048
     Dates: start: 20101111, end: 20101116
  3. LIPITOR [Concomitant]
     Route: 048
  4. OMEPRAZOLE [Concomitant]
     Route: 048
     Dates: start: 20101027, end: 20101104

REACTIONS (3)
  - OEDEMA PERIPHERAL [None]
  - PYREXIA [None]
  - CELLULITIS [None]
